FAERS Safety Report 5976312-7 (Version None)
Quarter: 2008Q4

REPORT INFORMATION
  Report Type: 
  Country: None (occurrence: None)
  Receive Date: 20081202
  Receipt Date: 20081111
  Transmission Date: 20090506
  Serious: No
  Sender: FDA-Public Use
  Company Number: US-B.I. PHARMACEUTICALS,INC./RIDGEFIELD-2008-BP-15575BP

PATIENT
  Age: 75 Year
  Sex: Female

DRUGS (13)
  1. CATAPRES-TTS-1 [Suspect]
     Indication: HYPERTENSION
     Dosage: .2MG
     Route: 062
     Dates: start: 20080801
  2. GLYBURIDE [Concomitant]
  3. COZAAR [Concomitant]
  4. GEMFRIBROZIL [Concomitant]
     Dosage: 120MG
  5. OXYBUTYNINE [Concomitant]
     Dosage: 10MG
  6. ZETIA [Concomitant]
     Dosage: 10MG
  7. NIFEDIPIN ER (XL) [Concomitant]
     Dosage: 120MG
  8. METOPROLOL [Concomitant]
     Dosage: 400MG
  9. DOXAZOSIN MESYLATE [Concomitant]
     Dosage: 16MG
  10. ISOSORB [Concomitant]
  11. TRIMETHOPRIM [Concomitant]
     Dosage: 100MG
  12. APAP W/ CODEINE [Concomitant]
  13. MAG-OX [Concomitant]
     Dosage: 800MG

REACTIONS (1)
  - DRUG INEFFECTIVE [None]
